FAERS Safety Report 5209978-X (Version None)
Quarter: 2006Q4

REPORT INFORMATION
  Report Type: 
  Country: None (occurrence: None)
  Receive Date: 20061128
  Receipt Date: 20060113
  Transmission Date: 20070319
  Serious: Yes (Other)
  Sender: FDA-Public Use
  Company Number: 2005126123

PATIENT
  Age: 81 Year
  Sex: Female
  Weight: 67.1324 kg

DRUGS (14)
  1. TIKOSYN [Suspect]
     Indication: ATRIAL FIBRILLATION
     Dosage: 0.5 MG (0.25 MG, 2 IN 1 D), ORAL
     Route: 048
     Dates: start: 20050501
  2. NEXIUM [Concomitant]
  3. WARFARIN SODIUM [Concomitant]
  4. IPRATROPIUM BROMIDE [Concomitant]
  5. POTASSIUM ACETATE [Concomitant]
  6. MAGNESIUM OXIDE [Concomitant]
  7. ZOLOFT [Concomitant]
  8. CALCIUM [Concomitant]
  9. COZAAR [Concomitant]
  10. ZETIA [Concomitant]
  11. LORAZEPAM [Concomitant]
  12. XOPENEX [Concomitant]
  13. AEROBID [Concomitant]
  14. CARDIZEM [Concomitant]

REACTIONS (5)
  - BOWEL MOVEMENT IRREGULARITY [None]
  - DRUG INEFFECTIVE [None]
  - FATIGUE [None]
  - HEART RATE INCREASED [None]
  - HYPERTENSION [None]
